FAERS Safety Report 12667288 (Version 1)
Quarter: 2016Q3

REPORT INFORMATION
  Report Type: Spontaneous
  Country: US (occurrence: None)
  Receive Date: 20160818
  Receipt Date: 20160818
  Transmission Date: 20161109
  Serious: Yes (Hospitalization)
  Sender: FDA-Public Use
  Company Number: None

PATIENT
  Age: 6 Year
  Sex: Male

DRUGS (4)
  1. METHOTREXATE. [Suspect]
     Active Substance: METHOTREXATE
     Dosage: METHOTREXATE 221 MG TOTAL DOSE ADMINISTERED - PO METHOTREXATE ON HOLD DUE TO NEUTROPENIA STARTING ON 09AUG2016
     Route: 048
     Dates: end: 20160808
  2. MERCAPTOPURINE. [Suspect]
     Active Substance: MERCAPTOPURINE
     Dosage: MERCAPTOPURINE - TOTAL DOSE ADMINISTERED 6552 MG - MERCAPTOPURINE HOLD DUE TO NEUTROPENIA STARTING ON 08/09/16
     Dates: end: 20160809
  3. VINCRISTINE SULFATE. [Suspect]
     Active Substance: VINCRISTINE SULFATE
     Dosage: VINCRISTINE SULFATE - TOTAL DOSE ADMINISTERED - 3.3 MG
     Dates: end: 20160713
  4. PREDNISONE. [Suspect]
     Active Substance: PREDNISONE
     Dosage: PREDNISONE - TOTAL DOSE ADMINISTERED 450 MG
     Dates: end: 20160717

REACTIONS (5)
  - Gastric ulcer [None]
  - Abdominal pain [None]
  - Pyrexia [None]
  - Neutropenia [None]
  - Streptococcus test positive [None]

NARRATIVE: CASE EVENT DATE: 20160810
